FAERS Safety Report 9551616 (Version 1)
Quarter: 2013Q3

REPORT INFORMATION
  Report Type: Spontaneous
  Country: US (occurrence: None)
  Receive Date: 20130724
  Receipt Date: 20130724
  Transmission Date: 20140515
  Serious: Yes (Other)
  Sender: FDA-Public Use
  Company Number: PHEH2012US012479

PATIENT
  Age: 69 Year
  Sex: Male
  Weight: 78 kg

DRUGS (5)
  1. GLEEVEC (IMATINIB) UNKNOWN [Suspect]
     Indication: GASTROINTESTINAL STROMAL TUMOUR
     Route: 048
     Dates: start: 200709, end: 20110103
  2. SUTENT (SUNITINIB MALATE) [Suspect]
  3. SORAFENIB (SORAFENIB) (SORAFENIB) [Suspect]
  4. SYNTHROID (LEVOTHYROXINE SODIUM) [Concomitant]
  5. METOPROLOL [Concomitant]

REACTIONS (5)
  - Neoplasm progression [None]
  - Pyrexia [None]
  - Chills [None]
  - Liver function test abnormal [None]
  - Malignant neoplasm progression [None]
